FAERS Safety Report 5446068-5 (Version None)
Quarter: 2007Q3

REPORT INFORMATION
  Report Type: 
  Country: None (occurrence: None)
  Receive Date: 20070907
  Receipt Date: 20070906
  Transmission Date: 20080115
  Serious: Yes (Life-Threatening, Hospitalization)
  Sender: FDA-Public Use
  Company Number: AU-BRISTOL-MYERS SQUIBB COMPANY-13891759

PATIENT
  Sex: Male

DRUGS (2)
  1. HYDREA [Suspect]
     Dates: start: 20070605, end: 20070712
  2. ANTIBIOTICS [Suspect]

REACTIONS (5)
  - FEELING COLD [None]
  - GAMMA-GLUTAMYLTRANSFERASE INCREASED [None]
  - LIVER DISORDER [None]
  - POLYCYTHAEMIA [None]
  - PYREXIA [None]
